FAERS Safety Report 20130453 (Version 1)
Quarter: 2021Q4

REPORT INFORMATION
  Report Type: Spontaneous
  Country: US (occurrence: None)
  Receive Date: 20211130
  Receipt Date: 20211130
  Transmission Date: 20220304
  Serious: No
  Sender: FDA-Public Use
  Company Number: None

PATIENT
  Age: 55 Year
  Sex: Female

DRUGS (1)
  1. DALFAMPRIDINE [Suspect]
     Active Substance: DALFAMPRIDINE
     Indication: Multiple sclerosis
     Dosage: FREQUENCY : TOTAL;?
     Route: 048
     Dates: start: 20151019

REACTIONS (3)
  - Drug ineffective [None]
  - Mobility decreased [None]
  - Therapy cessation [None]

NARRATIVE: CASE EVENT DATE: 20210501
